FAERS Safety Report 16782954 (Version 11)
Quarter: 2021Q3

REPORT INFORMATION
  Report Type: Spontaneous
  Country: US (occurrence: US)
  Receive Date: 20190906
  Receipt Date: 20210809
  Transmission Date: 20211014
  Serious: Yes (Other)
  Sender: FDA-Public Use
  Company Number: US-AKCEA THERAPEUTICS-2019IS001687

PATIENT
  Age: 81 Year
  Sex: Female
  Weight: 45.46 kg

DRUGS (3)
  1. TEGSEDI [Suspect]
     Active Substance: INOTERSEN SODIUM
     Indication: HEREDITARY NEUROPATHIC AMYLOIDOSIS
     Route: 058
     Dates: start: 2013, end: 20190625
  2. TEGSEDI [Suspect]
     Active Substance: INOTERSEN SODIUM
     Route: 058
     Dates: start: 20190625
  3. ISSD (INTEGRATED SYRINGE SAFETY DEVICE) [Suspect]
     Active Substance: DEVICE

REACTIONS (15)
  - Urine leukocyte esterase positive [Not Recovered/Not Resolved]
  - Renal function test abnormal [Unknown]
  - Diarrhoea [Not Recovered/Not Resolved]
  - Urinary tract infection [Not Recovered/Not Resolved]
  - White blood cells urine positive [Not Recovered/Not Resolved]
  - Creatinine urine decreased [Not Recovered/Not Resolved]
  - Red blood cells urine positive [Unknown]
  - Aspartate aminotransferase increased [Recovered/Resolved]
  - Bacterial test positive [Unknown]
  - Urine protein/creatinine ratio increased [Not Recovered/Not Resolved]
  - Pyuria [Recovering/Resolving]
  - Urine analysis abnormal [Unknown]
  - Alanine aminotransferase increased [Recovered/Resolved]
  - Urinary casts [Unknown]
  - Protein urine present [Not Recovered/Not Resolved]

NARRATIVE: CASE EVENT DATE: 2013
